FAERS Safety Report 8615338-1 (Version None)
Quarter: 2012Q3

REPORT INFORMATION
  Report Type: 
  Country: None (occurrence: None)
  Receive Date: 20120823
  Receipt Date: 20120814
  Transmission Date: 20120928
  Serious: Yes (Hospitalization)
  Sender: FDA-Public Use
  Company Number: BR-SHIRE-ALL1-2012-03885

PATIENT
  Age: 10 Year
  Sex: Male
  Weight: 30.95 kg

DRUGS (1)
  1. ELAPRASE [Suspect]
     Indication: MUCOPOLYSACCHARIDOSIS II
     Dosage: 0.5 MG/KG, 1X/WEEK
     Route: 041
     Dates: start: 20120717

REACTIONS (6)
  - RASH [None]
  - OBSTRUCTIVE AIRWAYS DISORDER [None]
  - NAUSEA [None]
  - BODY TEMPERATURE INCREASED [None]
  - OEDEMA [None]
  - INFUSION RELATED REACTION [None]
